FAERS Safety Report 8055807-9 (Version None)
Quarter: 2012Q1

REPORT INFORMATION
  Report Type: 
  Country: None (occurrence: None)
  Receive Date: 20120119
  Receipt Date: 20120117
  Transmission Date: 20120608
  Serious: Yes (Hospitalization, Other)
  Sender: FDA-Public Use
  Company Number: US-AMGEN-USASP2012003425

PATIENT
  Sex: Male

DRUGS (1)
  1. NPLATE [Suspect]
     Indication: PLATELET COUNT DECREASED
     Dosage: UNK
     Dates: start: 20111201

REACTIONS (4)
  - HOSPITALISATION [None]
  - DRUG INEFFECTIVE [None]
  - MECHANICAL VENTILATION [None]
  - PLATELET COUNT DECREASED [None]
